FAERS Safety Report 18455797 (Version 4)
Quarter: 2021Q3

REPORT INFORMATION
  Report Type: Other
  Country: JP (occurrence: JP)
  Receive Date: 20201102
  Receipt Date: 20210902
  Transmission Date: 20211014
  Serious: Yes (Hospitalization)
  Sender: FDA-Public Use
  Company Number: JP-ROCHE-2706713

PATIENT
  Age: 35 Year
  Sex: Female
  Weight: 43 kg

DRUGS (13)
  1. DORNER [Concomitant]
     Active Substance: BERAPROST SODIUM
     Route: 065
     Dates: start: 20111026
  2. ACTEMRA [Suspect]
     Active Substance: TOCILIZUMAB
     Dosage: DOSAGE IS UNCERTAIN.
     Route: 058
     Dates: start: 20190730
  3. PARIET [Concomitant]
     Active Substance: RABEPRAZOLE SODIUM
     Route: 065
     Dates: start: 20121102
  4. BLOPRESS [Concomitant]
     Active Substance: CANDESARTAN CILEXETIL
     Route: 065
     Dates: start: 20121122
  5. PREDNISOLONE. [Concomitant]
     Active Substance: PREDNISOLONE
     Indication: TAKAYASU^S ARTERITIS
     Route: 065
     Dates: start: 20121011
  6. FOSAMAC [Concomitant]
     Active Substance: ALENDRONATE SODIUM
     Route: 048
     Dates: start: 20121120
  7. TRACLEER [Concomitant]
     Active Substance: BOSENTAN
     Route: 065
     Dates: start: 20121219
  8. ACTEMRA [Suspect]
     Active Substance: TOCILIZUMAB
     Indication: TAKAYASU^S ARTERITIS
     Dosage: DOSAGE IS UNCERTAIN.
     Route: 058
     Dates: start: 20180613, end: 20190625
  9. PREDNISOLONE;TETRYZOLINE HYDROCHLORIDE [Concomitant]
     Indication: TAKAYASU^S ARTERITIS
     Route: 065
  10. ADALAT [Concomitant]
     Active Substance: NIFEDIPINE
     Route: 065
     Dates: start: 20151210
  11. EDIROL [Concomitant]
     Active Substance: ELDECALCITOL
     Route: 048
     Dates: start: 20180404
  12. ANPLAG (JAPAN) [Concomitant]
     Route: 065
     Dates: start: 20110929
  13. JUVELA N [Concomitant]
     Active Substance: TOCOPHERYL NICOTINATE, D-.ALPHA.
     Route: 065
     Dates: start: 20150122

REACTIONS (3)
  - Skin ulcer [Recovering/Resolving]
  - Off label use [Unknown]
  - Thromboangiitis obliterans [Recovering/Resolving]

NARRATIVE: CASE EVENT DATE: 20190618
